FAERS Safety Report 8395592-4 (Version None)
Quarter: 2012Q2

REPORT INFORMATION
  Report Type: 
  Country: None (occurrence: None)
  Receive Date: 20120530
  Receipt Date: 20111018
  Transmission Date: 20120825
  Serious: No
  Sender: FDA-Public Use
  Company Number: US-GLAXOSMITHKLINE-A0949534A

PATIENT
  Age: 60 Year
  Sex: Female

DRUGS (11)
  1. SLEEPING PILL [Concomitant]
  2. ELAVIL [Concomitant]
  3. NAVANE [Concomitant]
  4. ZOLOFT [Concomitant]
  5. LASIX [Concomitant]
  6. HEART MEDICATION [Concomitant]
     Dosage: 2TAB PER DAY
  7. UNKNOWN MEDICATION [Concomitant]
     Indication: FLUID RETENTION
  8. VENTOLIN [Suspect]
     Indication: BRONCHOSPASM
     Route: 055
  9. TRICOR [Concomitant]
  10. ALBUTEROL [Concomitant]
  11. BLOOD PRESSURE MEDICATION [Concomitant]

REACTIONS (3)
  - OEDEMA PERIPHERAL [None]
  - SKIN DISCOLOURATION [None]
  - DYSPNOEA [None]
